FAERS Safety Report 6829292-6 (Version None)
Quarter: 2010Q3

REPORT INFORMATION
  Report Type: 
  Country: None (occurrence: None)
  Receive Date: 20100709
  Receipt Date: 20070301
  Transmission Date: 20110219
  Serious: No
  Sender: FDA-Public Use
  Company Number: US-PFIZER INC-2007016571

PATIENT
  Sex: Female
  Weight: 52.16 kg

DRUGS (5)
  1. CHANTIX [Suspect]
     Indication: SMOKING CESSATION THERAPY
     Dates: start: 20070218
  2. BACLOFEN [Concomitant]
  3. VALIUM [Concomitant]
  4. SYNTHROID [Concomitant]
  5. COPAXONE [Concomitant]

REACTIONS (1)
  - INSOMNIA [None]
